FAERS Safety Report 20734775 (Version 3)
Quarter: 2022Q3

REPORT INFORMATION
  Report Type: Spontaneous
  Country: SE (occurrence: SE)
  Receive Date: 20220421
  Receipt Date: 20220707
  Transmission Date: 20221026
  Serious: Yes (Hospitalization, Disabling, Other)
  Sender: FDA-Public Use
  Company Number: None

PATIENT
  Age: 73 Year
  Sex: Female

DRUGS (1)
  1. ACLASTA [Suspect]
     Active Substance: ZOLEDRONIC ACID
     Indication: Osteoporosis
     Dosage: 1 UNK, TOTAL
     Route: 042
     Dates: start: 20220321, end: 20220321

REACTIONS (11)
  - Amnesia [Recovered/Resolved]
  - Nausea [Unknown]
  - Chills [Recovered/Resolved]
  - Myalgia [Unknown]
  - Pyrexia [Recovered/Resolved]
  - Dyspnoea [Recovered/Resolved]
  - Sinus tachycardia [Unknown]
  - Chest pain [Unknown]
  - Arthralgia [Unknown]
  - Heart rate irregular [Unknown]
  - Pain [Unknown]

NARRATIVE: CASE EVENT DATE: 20220101
